FAERS Safety Report 15988732 (Version 1)
Quarter: 2019Q1

REPORT INFORMATION
  Report Type: Spontaneous
  Country: FR (occurrence: FR)
  Receive Date: 20190221
  Receipt Date: 20190221
  Transmission Date: 20190418
  Serious: Yes (Death)
  Sender: FDA-Public Use
  Company Number: FR-ZYDUS-033593

PATIENT
  Age: 76 Year
  Sex: Male
  Weight: 95 kg

DRUGS (13)
  1. PAROXETINE. [Suspect]
     Active Substance: PAROXETINE
     Indication: DEPRESSION
     Dosage: 20 MG, SCORED FILM-COATED TABLET
     Route: 048
     Dates: start: 2009, end: 20190116
  2. MACROGOL [Suspect]
     Active Substance: POLYETHYLENE GLYCOLS
     Indication: CONSTIPATION
     Route: 048
     Dates: start: 2009, end: 20190116
  3. COLECALCIFEROL [Suspect]
     Active Substance: CHOLECALCIFEROL
     Indication: VITAMIN D DEFICIENCY
     Dosage: 100,000 IU, ORAL SOLUTION IN AMPOULE
     Route: 048
     Dates: end: 20190116
  4. ADENOSINE TRIPHOSPHATE [Suspect]
     Active Substance: ADENOSINE TRIPHOSPHATE
     Indication: BACK PAIN
     Dosage: 30 MG CAPSULE
     Route: 048
     Dates: end: 20190116
  5. CALCIFEDIOL [Suspect]
     Active Substance: CALCIFEDIOL
     Indication: PROPHYLAXIS
     Dosage: 15 MG / 100 ML, ORAL DROPS SOLUTION
     Route: 048
     Dates: start: 2014, end: 20190116
  6. FAMPRIDINE [Suspect]
     Active Substance: DALFAMPRIDINE
     Indication: MULTIPLE SCLEROSIS
     Dosage: 10 MG PROLONGED-RELEASE TABLET
     Route: 048
     Dates: start: 2013, end: 20190116
  7. OMIX LP [Suspect]
     Active Substance: TAMSULOSIN HYDROCHLORIDE
     Indication: PRODUCT USED FOR UNKNOWN INDICATION
     Dosage: 0.4 MG, MICROGRANULES WITH PROLONGED RELEASE IN CAPSULE
     Route: 048
     Dates: start: 2009, end: 20190116
  8. DICLOFENAC [Suspect]
     Active Substance: DICLOFENAC
     Indication: BACK PAIN
     Dosage: ()
     Route: 003
     Dates: end: 20190116
  9. PARACETAMOL [Suspect]
     Active Substance: ACETAMINOPHEN
     Indication: BACK PAIN
     Route: 048
     Dates: end: 20190116
  10. FLUINDIONE [Suspect]
     Active Substance: FLUINDIONE
     Indication: ATRIAL FIBRILLATION
     Dosage: 20 MG, SCORED TABLET
     Route: 048
     Dates: start: 2006, end: 20190116
  11. MYCOPHENOLIC ACID. [Suspect]
     Active Substance: MYCOPHENOLIC ACID
     Indication: MULTIPLE SCLEROSIS
     Dosage: 500 MG TABLET
     Route: 048
     Dates: start: 2010, end: 20190116
  12. BACLOFEN. [Suspect]
     Active Substance: BACLOFEN
     Indication: MULTIPLE SCLEROSIS
     Route: 048
     Dates: end: 20190116
  13. ATENOLOL. [Suspect]
     Active Substance: ATENOLOL
     Indication: ATRIAL FIBRILLATION
     Route: 048
     Dates: start: 2006, end: 20190116

REACTIONS (3)
  - Subdural haematoma [Fatal]
  - Brain herniation [Fatal]
  - Intracranial pressure increased [Fatal]

NARRATIVE: CASE EVENT DATE: 20190116
